FAERS Safety Report 5163238-4 (Version None)
Quarter: 2006Q4

REPORT INFORMATION
  Report Type: 
  Country: None (occurrence: None)
  Receive Date: 20061204
  Receipt Date: 20061120
  Transmission Date: 20070319
  Serious: Yes (Death, Hospitalization)
  Sender: FDA-Public Use
  Company Number: GB-BRISTOL-MYERS SQUIBB COMPANY-13585427

PATIENT
  Age: 58 Year
  Sex: Male

DRUGS (2)
  1. WARFARIN SODIUM [Suspect]
     Indication: MITRAL VALVE REPLACEMENT
  2. HEPARIN [Suspect]
     Indication: MITRAL VALVE REPLACEMENT

REACTIONS (8)
  - ANTITHROMBIN III DEFICIENCY [None]
  - BRONCHIAL CARCINOMA [None]
  - INTERNATIONAL NORMALISED RATIO INCREASED [None]
  - LEUKOCYTOSIS [None]
  - PNEUMONIA [None]
  - PROTEIN S DEFICIENCY [None]
  - SKIN NECROSIS [None]
  - THROMBOCYTOPENIA [None]
